FAERS Safety Report 20233123 (Version 2)
Quarter: 2021Q4

REPORT INFORMATION
  Report Type: Report from Study
  Country: US (occurrence: None)
  Receive Date: 20211227
  Receipt Date: 20211230
  Transmission Date: 20220303
  Serious: Yes (Hospitalization)
  Sender: FDA-Public Use
  Company Number: US-ROCHE-2984871

PATIENT
  Age: 64 Year
  Sex: Male
  Weight: 78.1 kg

DRUGS (1)
  1. ATEZOLIZUMAB [Suspect]
     Active Substance: ATEZOLIZUMAB
     Indication: Squamous cell carcinoma of head and neck
     Route: 041
     Dates: start: 20211203

REACTIONS (3)
  - Generalised tonic-clonic seizure [Unknown]
  - Atrial flutter [Unknown]
  - Pyrexia [Unknown]

NARRATIVE: CASE EVENT DATE: 20211214
